FAERS Safety Report 9115193 (Version 1)
Quarter: 2013Q1

REPORT INFORMATION
  Report Type: Spontaneous
  Country: US (occurrence: None)
  Receive Date: 20130220
  Receipt Date: 20130220
  Transmission Date: 20140127
  Serious: No
  Sender: FDA-Public Use
  Company Number: None

PATIENT
  Sex: Female
  Weight: 95.3 kg

DRUGS (9)
  1. IFOSFAMIDE [Suspect]
  2. PACLITAXEL (TAXOL) [Suspect]
  3. PEGFILGRASTIM [Suspect]
  4. DECADRON [Concomitant]
  5. MESNA [Concomitant]
  6. LORAZEPAM [Concomitant]
  7. PROCHLORPERAZINE [Concomitant]
  8. TRAZODONE [Concomitant]
  9. VALSARTAN [Concomitant]

REACTIONS (8)
  - Headache [None]
  - Nausea [None]
  - Vomiting [None]
  - Asthenia [None]
  - Fatigue [None]
  - Decreased appetite [None]
  - Urinary incontinence [None]
  - Insomnia [None]
